FAERS Safety Report 6448603-7 (Version None)
Quarter: 2009Q4

REPORT INFORMATION
  Report Type: 
  Country: None (occurrence: None)
  Receive Date: 20091119
  Receipt Date: 20091119
  Transmission Date: 20100525
  Serious: Yes (Hospitalization)
  Sender: FDA-Public Use
  Company Number: None

PATIENT
  Age: 57 Year
  Sex: Male

DRUGS (1)
  1. TRIMETHOPRIM-SULFAMETHOXAZOLE [Suspect]
     Indication: SKIN INFECTION
     Dosage: 1TAB BID PO
     Route: 048
     Dates: start: 20091113, end: 20091117

REACTIONS (4)
  - HYPOGLYCAEMIA [None]
  - HYPOTENSION [None]
  - PRURITUS [None]
  - RENAL FAILURE ACUTE [None]
